FAERS Safety Report 6862387-X (Version None)
Quarter: 2010Q3

REPORT INFORMATION
  Report Type: 
  Country: None (occurrence: None)
  Receive Date: 20100721
  Receipt Date: 20100714
  Transmission Date: 20110219
  Serious: Yes (Other)
  Sender: FDA-Public Use
  Company Number: US-ASTRAZENECA-2010SE32947

PATIENT
  Age: 76 Year
  Sex: Female
  Weight: 72.6 kg

DRUGS (2)
  1. NEXIUM [Suspect]
     Indication: GASTROOESOPHAGEAL REFLUX DISEASE
     Route: 048
     Dates: start: 20000101
  2. PRILOSEC [Suspect]
     Route: 048

REACTIONS (8)
  - ABDOMINAL DISCOMFORT [None]
  - ABDOMINAL PAIN UPPER [None]
  - CARDIAC OPERATION [None]
  - DRUG DOSE OMISSION [None]
  - DRUG INEFFECTIVE [None]
  - HICCUPS [None]
  - MALAISE [None]
  - VOMITING [None]
